FAERS Safety Report 6551080-9 (Version None)
Quarter: 2010Q1

REPORT INFORMATION
  Report Type: 
  Country: None (occurrence: None)
  Receive Date: 20100122
  Receipt Date: 20100122
  Transmission Date: 20100710
  Serious: Yes (Other)
  Sender: FDA-Public Use
  Company Number: None

PATIENT
  Age: 42 Year
  Sex: Female
  Weight: 73.9363 kg

DRUGS (2)
  1. SYSTANE ULTRA [Suspect]
     Indication: DRY EYE
     Dosage: DROPS AS NEEDED 1-2 DROPS
     Dates: start: 20100119, end: 20100120
  2. DRY EYES/BLINK TEARS [Suspect]
     Indication: DRY EYE

REACTIONS (7)
  - AGITATION [None]
  - DYSPNOEA [None]
  - EYE SWELLING [None]
  - FEELING ABNORMAL [None]
  - HYPOAESTHESIA [None]
  - OCULAR HYPERAEMIA [None]
  - PARAESTHESIA [None]
